FAERS Safety Report 4290482-0 (Version None)
Quarter: 2004Q1

REPORT INFORMATION
  Report Type: 
  Country: None (occurrence: None)
  Receive Date: 20040209
  Receipt Date: 20040127
  Transmission Date: 20041129
  Serious: Yes (Other)
  Sender: FDA-Public Use
  Company Number: IMM024393DE9359029NOV2002

PATIENT
  Age: 61 Year
  Sex: Female

DRUGS (9)
  1. ENBREL [Suspect]
     Indication: ARTHROPATHY
     Dosage: 25,  1 IN 5 DAYS, SC
     Route: 058
  2. IBUPROFEN [Concomitant]
  3. PREDNISOLONE [Concomitant]
  4. MOXONIDINE [Concomitant]
  5. LERCANIDIPINE HYDROCHLORIDE [Concomitant]
  6. CARVEDILOL [Concomitant]
  7. FLUVOXAMINE MALEATE [Concomitant]
  8. VALSARTAN [Concomitant]
  9. VALDECOXIB [Concomitant]

REACTIONS (12)
  - ALOPECIA [None]
  - ANGIOPATHY [None]
  - ARTHRALGIA [None]
  - DEMYELINATION [None]
  - DISTURBANCE IN ATTENTION [None]
  - ENCEPHALOPATHY [None]
  - FEELING ABNORMAL [None]
  - HEADACHE [None]
  - MEMORY IMPAIRMENT [None]
  - NASOPHARYNGITIS [None]
  - NUCLEAR MAGNETIC RESONANCE IMAGING ABNORMAL [None]
  - SPINAL VASCULAR DISORDER [None]
